FAERS Safety Report 18185495 (Version 1)
Quarter: 2020Q3

REPORT INFORMATION
  Report Type: Spontaneous
  Country: US (occurrence: US)
  Receive Date: 20200821
  Receipt Date: 20200821
  Transmission Date: 20201103
  Serious: Yes (Other)
  Sender: FDA-Public Use
  Company Number: None

PATIENT
  Age: 77 Year
  Sex: Female
  Weight: 83.25 kg

DRUGS (12)
  1. IMATINIB. [Suspect]
     Active Substance: IMATINIB MESYLATE
     Indication: CHRONIC MYELOID LEUKAEMIA
     Route: 048
     Dates: start: 20170810, end: 20200821
  2. ASPIRIN 81MG [Concomitant]
     Active Substance: ASPIRIN
  3. IMATINIB. [Suspect]
     Active Substance: IMATINIB MESYLATE
     Indication: CHRONIC MYELOID LEUKAEMIA
     Route: 048
     Dates: start: 20170629, end: 20200821
  4. PICATO [Concomitant]
     Active Substance: INGENOL MEBUTATE
  5. MAGNESIUM CHLORIDE 64MG [Concomitant]
  6. TRIAMTEREN?HCTZ 37.5?25MG [Concomitant]
  7. OMEPRAZOLE 20MG [Concomitant]
     Active Substance: OMEPRAZOLE
  8. LIPITOR [Concomitant]
     Active Substance: ATORVASTATIN CALCIUM
  9. VITAMIN D3 400 UNITS [Concomitant]
  10. ALIGN 4MG [Concomitant]
  11. ISOSORBIDE MONONITRATE ER 30MG [Concomitant]
  12. PLAQUENIL 200MG [Concomitant]

REACTIONS (3)
  - Pulmonary oedema [None]
  - Peripheral swelling [None]
  - Abdominal distension [None]

NARRATIVE: CASE EVENT DATE: 20200811
